FAERS Safety Report 13150092 (Version 2)
Quarter: 2017Q2

REPORT INFORMATION
  Report Type: Spontaneous
  Country: JP (occurrence: JP)
  Receive Date: 20170125
  Receipt Date: 20170509
  Transmission Date: 20170830
  Serious: Yes (Other)
  Sender: FDA-Public Use
  Company Number: JP-PFIZER INC-2017026928

PATIENT
  Age: 57 Year
  Sex: Male
  Weight: 75 kg

DRUGS (5)
  1. ETHYL LOFLAZEPATE [Concomitant]
     Active Substance: ETHYL LOFLAZEPATE
     Indication: INSOMNIA
  2. EFFEXOR [Suspect]
     Active Substance: VENLAFAXINE HYDROCHLORIDE
     Dosage: 75 MG, 1X/DAY
     Route: 048
     Dates: start: 20160316, end: 20160426
  3. ETHYL LOFLAZEPATE [Concomitant]
     Active Substance: ETHYL LOFLAZEPATE
     Indication: ANXIETY
     Dosage: 1 MG, 1X/DAY
     Route: 048
     Dates: start: 20160308, end: 20160821
  4. EFFEXOR [Suspect]
     Active Substance: VENLAFAXINE HYDROCHLORIDE
     Indication: DEPRESSION
     Dosage: 37.5 MG, 1X/DAY
     Route: 048
     Dates: start: 20160309, end: 20160315
  5. ZOLPIDEM [Concomitant]
     Active Substance: ZOLPIDEM\ZOLPIDEM TARTRATE
     Indication: INSOMNIA
     Dosage: 5 MG, UNK
     Route: 048
     Dates: start: 20160315, end: 20160328

REACTIONS (3)
  - Logorrhoea [Recovered/Resolved]
  - Hypomania [Recovered/Resolved]
  - Euphoric mood [Recovered/Resolved]

NARRATIVE: CASE EVENT DATE: 201604
